FAERS Safety Report 24083036 (Version 1)
Quarter: 2024Q3

REPORT INFORMATION
  Report Type: Spontaneous
  Country: LU (occurrence: LU)
  Receive Date: 20240712
  Receipt Date: 20240712
  Transmission Date: 20241017
  Serious: Yes (Hospitalization)
  Sender: TEVA
  Company Number: None

PATIENT
  Age: 74 Year
  Sex: Female
  Weight: 49 kg

DRUGS (5)
  1. PACLITAXEL [Suspect]
     Active Substance: PACLITAXEL
     Indication: Benign breast neoplasm
     Dosage: TIME INTERVAL: CYCLICAL: 2ND CURE OF CHEMOTHERAPY, DAY 14, PACLITAXEL TEVA
     Route: 042
     Dates: start: 20240619, end: 20240619
  2. ONDANSETRON [Concomitant]
     Active Substance: ONDANSETRON
     Indication: Chemotherapy side effect prophylaxis
     Dosage: TIME INTERVAL: TOTAL: 2ND CURE OF CHEMOTHERAPY, DAY 14
     Route: 042
     Dates: start: 20240619, end: 20240619
  3. CIMETIDINE [Concomitant]
     Active Substance: CIMETIDINE
     Indication: Chemotherapy side effect prophylaxis
     Dosage: TIME INTERVAL: TOTAL: 2ND CURE OF CHEMOTHERAPY, DAY 14
     Route: 048
     Dates: start: 20240619, end: 20240619
  4. DEXAMETHASONE [Concomitant]
     Active Substance: DEXAMETHASONE
     Indication: Chemotherapy side effect prophylaxis
     Dosage: TIME INTERVAL: TOTAL: 2ND CURE OF CHEMOTHERAPY, DAY 14
     Route: 042
     Dates: start: 20240619, end: 20240619
  5. DEXCHLORPHENIRAMINE [Concomitant]
     Active Substance: DEXCHLORPHENIRAMINE
     Indication: Chemotherapy side effect prophylaxis
     Dosage: TIME INTERVAL: TOTAL: 2ND CURE OF CHEMOTHERAPY, DAY 14
     Route: 042
     Dates: start: 20240619, end: 20240619

REACTIONS (1)
  - Infusion related reaction [Recovering/Resolving]

NARRATIVE: CASE EVENT DATE: 20240619
